APPROVED DRUG PRODUCT: TESTOSTERONE
Active Ingredient: TESTOSTERONE
Strength: 50MG/ML
Dosage Form/Route: INJECTABLE;INJECTION
Application: A086419 | Product #001
Applicant: WATSON LABORATORIES INC
Approved: Aug 23, 1983 | RLD: No | RS: No | Type: DISCN